FAERS Safety Report 10053051 (Version 1)
Quarter: 2014Q2

REPORT INFORMATION
  Report Type: Other
  Country: US (occurrence: US)
  Receive Date: 20140402
  Receipt Date: 20140402
  Transmission Date: 20141212
  Serious: Yes (Death)
  Sender: FDA-Public Use
  Company Number: US-ACTELION-A-CH2014-96507

PATIENT
  Age: 15 Year
  Sex: Female
  Weight: 13.61 kg

DRUGS (1)
  1. VELETRI [Suspect]
     Indication: PULMONARY ARTERIAL HYPERTENSION
     Dosage: UNK
     Route: 042
     Dates: start: 201401, end: 20140125

REACTIONS (7)
  - Pulmonary arterial hypertension [Fatal]
  - Condition aggravated [Fatal]
  - Cardiac failure [Fatal]
  - Fluid retention [Fatal]
  - Malaise [Unknown]
  - Pyrexia [Unknown]
  - Pancreatitis [Unknown]
